FAERS Safety Report 11001550 (Version 2)
Quarter: 2015Q2

REPORT INFORMATION
  Report Type: Report from Study
  Country: HK (occurrence: HK)
  Receive Date: 20150408
  Receipt Date: 20150409
  Transmission Date: 20150821
  Serious: Yes (Hospitalization)
  Sender: FDA-Public Use
  Company Number: HK-009507513-1007USA02983

PATIENT
  Age: 69 Year
  Sex: Male
  Weight: 58 kg

DRUGS (6)
  1. SITAGLIPTIN PHOSPHATE [Suspect]
     Active Substance: SITAGLIPTIN PHOSPHATE
     Indication: TYPE 2 DIABETES MELLITUS
     Dosage: 50 MG, QD
     Route: 048
     Dates: start: 20091127
  2. ASPIRIN. [Concomitant]
     Active Substance: ASPIRIN
     Indication: ACUTE CORONARY SYNDROME
     Dosage: 80 MG, UNK
     Dates: start: 20091022
  3. FAMOTIDINE. [Concomitant]
     Active Substance: FAMOTIDINE
     Indication: ACUTE CORONARY SYNDROME
     Dosage: 80 MG, UNK
     Dates: start: 20091022
  4. ATENOLOL. [Concomitant]
     Active Substance: ATENOLOL
     Indication: HYPERTENSION
     Dosage: 25 MG, UNK
     Dates: start: 20091022
  5. SIMVASTATIN. [Concomitant]
     Active Substance: SIMVASTATIN
     Indication: DYSLIPIDAEMIA
     Dosage: 20 MG, UNK
     Dates: start: 20091022
  6. GLICLAZIDE [Suspect]
     Active Substance: GLICLAZIDE
     Indication: TYPE 2 DIABETES MELLITUS
     Dosage: 100 MG, BID
     Route: 048
     Dates: start: 20091022

REACTIONS (1)
  - Hypoglycaemia [Recovered/Resolved]

NARRATIVE: CASE EVENT DATE: 20100402
